FAERS Safety Report 9685507 (Version 1)
Quarter: 2013Q4

REPORT INFORMATION
  Report Type: Spontaneous
  Country: TW (occurrence: TW)
  Receive Date: 20131113
  Receipt Date: 20131113
  Transmission Date: 20140711
  Serious: Yes (Other)
  Sender: FDA-Public Use
  Company Number: TW-MYLANLABS-2013S1024787

PATIENT
  Age: 58 Year
  Sex: Male

DRUGS (15)
  1. CLARITHROMYCIN [Suspect]
     Indication: ANTIBIOTIC THERAPY
     Route: 065
  2. TACROLIMUS [Interacting]
     Indication: IMMUNOSUPPRESSANT DRUG THERAPY
     Dosage: 1.5MG
     Route: 065
  3. MYCOPHENOLATE SODIUM [Concomitant]
     Indication: IMMUNOSUPPRESSANT DRUG THERAPY
     Route: 065
  4. ASPIRIN [Concomitant]
     Route: 065
  5. BISOPROLOL [Concomitant]
     Route: 065
  6. GLIMEPIRIDE [Concomitant]
     Route: 065
  7. METFORMIN [Concomitant]
     Route: 065
  8. ATORVASTATIN [Concomitant]
     Route: 065
  9. GANCICLOVIR [Concomitant]
     Route: 065
  10. DUOCID                             /00892601/ [Concomitant]
     Route: 065
  11. CILASTATIN W/IMIPENEM [Concomitant]
     Route: 065
  12. COLISTIN [Concomitant]
     Route: 065
  13. LEVOFLOXACIN [Concomitant]
     Route: 065
  14. TIGECYCLINE [Concomitant]
     Route: 065
  15. MINOCYCLINE [Concomitant]
     Route: 065

REACTIONS (3)
  - Renal failure acute [Recovering/Resolving]
  - Drug interaction [Recovering/Resolving]
  - Drug level increased [Recovered/Resolved]
